FAERS Safety Report 6187432-9 (Version None)
Quarter: 2009Q2

REPORT INFORMATION
  Report Type: 
  Country: None (occurrence: None)
  Receive Date: 20090512
  Receipt Date: 20090505
  Transmission Date: 20091009
  Serious: Yes (Hospitalization)
  Sender: FDA-Public Use
  Company Number: US-MERCK-0905USA00541

PATIENT
  Age: 78 Year
  Sex: Female

DRUGS (4)
  1. VYTORIN [Suspect]
     Indication: BLOOD CHOLESTEROL
     Route: 048
     Dates: start: 20050101, end: 20090505
  2. SYNTHROID [Concomitant]
     Route: 065
  3. LISINOPRIL [Concomitant]
     Route: 048
  4. GABAPENTIN [Suspect]
     Route: 065

REACTIONS (7)
  - ANAEMIA [None]
  - DIZZINESS [None]
  - DRUG INEFFECTIVE [None]
  - MUSCLE DISORDER [None]
  - RENAL DISORDER [None]
  - SPINAL COLUMN STENOSIS [None]
  - VISION BLURRED [None]
